FAERS Safety Report 6191157-3 (Version None)
Quarter: 2009Q2

REPORT INFORMATION
  Report Type: 
  Country: None (occurrence: None)
  Receive Date: 20090515
  Receipt Date: 20090507
  Transmission Date: 20091009
  Serious: Yes (Hospitalization, Disabling)
  Sender: FDA-Public Use
  Company Number: DE-JNJFOC-20090501622

PATIENT
  Age: 70 Year
  Sex: Male

DRUGS (5)
  1. TAVANIC [Suspect]
     Indication: URINARY TRACT INFECTION
     Route: 048
  2. PANTOZOL [Concomitant]
     Route: 048
  3. REMERGIL [Concomitant]
     Route: 048
  4. NOVALGINE [Concomitant]
     Dosage: 40 DROPS
     Route: 048
  5. LACTULOSE [Concomitant]
     Indication: CONSTIPATION
     Route: 048

REACTIONS (3)
  - CHOLESTASIS [None]
  - HEPATOTOXICITY [None]
  - MYALGIA [None]
